FAERS Safety Report 23447766 (Version 1)
Quarter: 2024Q1

REPORT INFORMATION
  Report Type: Spontaneous
  Country: US (occurrence: US)
  Receive Date: 20240126
  Receipt Date: 20240126
  Transmission Date: 20240410
  Serious: No
  Sender: FDA-Public Use
  Company Number: US-MYOVANT SCIENCES GMBH-2023MYSCI0800948

PATIENT
  Age: 42 Year
  Sex: Female

DRUGS (3)
  1. MYFEMBREE [Suspect]
     Active Substance: ESTRADIOL HEMIHYDRATE\NORETHINDRONE ACETATE\RELUGOLIX
     Indication: Heavy menstrual bleeding
     Dosage: 40 MILLIGRAM, QD
     Route: 048
     Dates: start: 20230520, end: 20230711
  2. NAPROXEN                           /00256202/ [Concomitant]
     Indication: Muscle spasms
     Dosage: UNK, PRN
     Route: 065
  3. IBUPROFEN                          /00109205/ [Concomitant]
     Indication: Muscle spasms
     Dosage: UNK, PRN
     Route: 065

REACTIONS (1)
  - Therapy interrupted [Unknown]

NARRATIVE: CASE EVENT DATE: 20230712
